FAERS Safety Report 7933062-5 (Version None)
Quarter: 2011Q4

REPORT INFORMATION
  Report Type: 
  Country: None (occurrence: None)
  Receive Date: 20111121
  Receipt Date: 20111121
  Transmission Date: 20120403
  Serious: Yes (Hospitalization)
  Sender: FDA-Public Use
  Company Number: None

PATIENT
  Age: 69 Year
  Sex: Female
  Weight: 55.6 kg

DRUGS (7)
  1. PRILOSEC [Concomitant]
  2. BEVACIZUMAB [Suspect]
     Indication: METASTATIC MALIGNANT MELANOMA
     Dosage: 15 MG/KG Q3W, IV
     Route: 042
     Dates: start: 20111024
  3. MULTI-VITAMIN [Concomitant]
  4. ATIVAN [Concomitant]
  5. IPILIMUMAB [Suspect]
     Indication: METASTATIC MALIGNANT MELANOMA
     Dosage: 3 MG/KG Q3W, Q3M, IV
     Route: 042
     Dates: start: 20111024
  6. HYDROXYZINE HCL [Concomitant]
  7. CIPROFLOXACIN [Concomitant]

REACTIONS (10)
  - VOMITING [None]
  - PYREXIA [None]
  - ABDOMINAL PAIN UPPER [None]
  - URINARY TRACT INFECTION [None]
  - DYSPNOEA [None]
  - CHILLS [None]
  - RASH [None]
  - NAUSEA [None]
  - CONSTIPATION [None]
  - FATIGUE [None]
